FAERS Safety Report 9800241 (Version 1)
Quarter: 2014Q1

REPORT INFORMATION
  Report Type: Report from Study
  Country: US (occurrence: US)
  Receive Date: 20140106
  Receipt Date: 20140106
  Transmission Date: 20141002
  Serious: Yes (Life-Threatening)
  Sender: FDA-Public Use
  Company Number: US-CELGENEUS-163-C4047-14010179

PATIENT
  Age: 68 Year
  Sex: Male
  Weight: 94.4 kg

DRUGS (3)
  1. CC-4047 [Suspect]
     Indication: AMYLOIDOSIS
     Dosage: 4 MILLIGRAM
     Route: 048
     Dates: start: 20131216, end: 20140101
  2. DEXAMETHASONE [Suspect]
     Indication: AMYLOIDOSIS
     Route: 065
     Dates: end: 201310
  3. DEXAMETHASONE [Suspect]
     Route: 065
     Dates: start: 20131216

REACTIONS (1)
  - Neutropenic sepsis [Not Recovered/Not Resolved]
